FAERS Safety Report 20551619 (Version 1)
Quarter: 2022Q1

REPORT INFORMATION
  Report Type: Spontaneous
  Country: US (occurrence: US)
  Receive Date: 20220304
  Receipt Date: 20220304
  Transmission Date: 20220423
  Serious: Yes (Hospitalization)
  Sender: FDA-Public Use
  Company Number: US-LUPIN PHARMACEUTICALS INC.-2022-02843

PATIENT
  Age: 19 Year
  Sex: Female

DRUGS (4)
  1. CALCIUM [Suspect]
     Active Substance: CALCIUM
     Indication: Pseudohypoparathyroidism
     Dosage: UNK
     Route: 042
  2. CALCIUM [Suspect]
     Active Substance: CALCIUM
     Dosage: UNK
     Route: 048
  3. CHOLECALCIFEROL [Suspect]
     Active Substance: CHOLECALCIFEROL
     Indication: Pseudohypoparathyroidism
     Dosage: UNK
     Route: 048
  4. CALCITRIOL [Suspect]
     Active Substance: CALCITRIOL
     Indication: Pseudohypoparathyroidism
     Dosage: UNK
     Route: 048

REACTIONS (1)
  - Drug ineffective [Unknown]
